FAERS Safety Report 7479031-3 (Version None)
Quarter: 2011Q2

REPORT INFORMATION
  Report Type: 
  Country: None (occurrence: None)
  Receive Date: 20110513
  Receipt Date: 20110504
  Transmission Date: 20111010
  Serious: Yes (Hospitalization)
  Sender: FDA-Public Use
  Company Number: PHHY2011GB37337

PATIENT
  Age: 6 Hour
  Weight: 3.38 kg

DRUGS (3)
  1. FLUOXETINE [Suspect]
     Dosage: MATERNAL DOSE: 20 MG DAILY
     Route: 064
  2. DIAMORPHINE [Concomitant]
     Dosage: UNK UKN, UNK
     Route: 064
  3. FLUOXETINE [Suspect]
     Dosage: MATERNAL DOSE: 40 MG DAILY
     Route: 064

REACTIONS (12)
  - POSTURE ABNORMAL [None]
  - AGITATION NEONATAL [None]
  - DRUG EXPOSURE DURING PREGNANCY [None]
  - MUSCLE SPASTICITY [None]
  - HYPERTONIA [None]
  - MECONIUM STAIN [None]
  - CEREBRAL DISORDER [None]
  - IRRITABILITY [None]
  - HYPOTONIA [None]
  - DYSKINESIA [None]
  - HYPERVENTILATION [None]
  - MUSCLE TWITCHING [None]
